FAERS Safety Report 16584879 (Version 3)
Quarter: 2020Q1

REPORT INFORMATION
  Report Type: Report from Study
  Country: IT (occurrence: IT)
  Receive Date: 20190717
  Receipt Date: 20200317
  Transmission Date: 20200409
  Serious: Yes (Hospitalization)
  Sender: FDA-Public Use
  Company Number: PHHY2019IT162630

PATIENT
  Age: 74 Year
  Sex: Male
  Weight: 68 kg

DRUGS (2)
  1. TRAMETINIB [Suspect]
     Active Substance: TRAMETINIB
     Indication: THYROID CANCER METASTATIC
     Dosage: 2 MG, QD
     Route: 048
     Dates: start: 20190312, end: 20190810
  2. DABRAFENIB [Suspect]
     Active Substance: DABRAFENIB
     Indication: THYROID CANCER METASTATIC
     Dosage: 300 MG, QD
     Route: 048
     Dates: start: 20190312, end: 20190810

REACTIONS (5)
  - Infection [Recovering/Resolving]
  - Klebsiella sepsis [Recovered/Resolved]
  - Sepsis [Recovered/Resolved]
  - Pneumonia klebsiella [Recovered/Resolved]
  - Pyrexia [Not Recovered/Not Resolved]

NARRATIVE: CASE EVENT DATE: 20190509
